FAERS Safety Report 21158182 (Version 1)
Quarter: 2022Q3

REPORT INFORMATION
  Report Type: Spontaneous
  Country: MK (occurrence: MK)
  Receive Date: 20220801
  Receipt Date: 20220801
  Transmission Date: 20221026
  Serious: Yes (Other)
  Sender: FDA-Public Use
  Company Number: MK-Merck Healthcare KGaA-9338822

PATIENT
  Age: 40 Year
  Sex: Female

DRUGS (3)
  1. ERBITUX [Suspect]
     Active Substance: CETUXIMAB
     Indication: Colorectal adenocarcinoma
     Dosage: 500 MG/M2, 2/M
     Route: 065
  2. IRINOTECAN [Suspect]
     Active Substance: IRINOTECAN
     Indication: Colorectal adenocarcinoma
     Dosage: 120 MG/M2, 2/M
     Route: 065
  3. TALIGLUCERASE ALFA [Concomitant]
     Active Substance: TALIGLUCERASE ALFA
     Indication: Gaucher^s disease
     Dosage: 60 U, 2/M
     Route: 065

REACTIONS (3)
  - Platelet count decreased [Unknown]
  - Anaemia [Unknown]
  - Off label use [Unknown]
